FAERS Safety Report 8209504-7 (Version None)
Quarter: 2012Q1

REPORT INFORMATION
  Report Type: 
  Country: None (occurrence: None)
  Receive Date: 20120314
  Receipt Date: 20120314
  Transmission Date: 20120608
  Serious: Yes (Death, Life-Threatening, Hospitalization, Other)
  Sender: FDA-Public Use
  Company Number: ES-ABBOTT-12P-144-0902905-00

PATIENT
  Sex: Male

DRUGS (7)
  1. CORTICOSTEROIDS [Concomitant]
     Indication: PSORIATIC ARTHROPATHY
  2. ARAVA [Suspect]
     Indication: PSORIATIC ARTHROPATHY
     Route: 048
     Dates: start: 20110107, end: 20111203
  3. HUMIRA [Suspect]
     Indication: PSORIATIC ARTHROPATHY
     Route: 058
     Dates: start: 20051116, end: 20111203
  4. ACETAMINOPHEN [Concomitant]
     Indication: PRODUCT USED FOR UNKNOWN INDICATION
  5. ANTIHYPERTENSIVE DRUG [Concomitant]
     Indication: HYPERTENSION
     Route: 048
  6. ENALAPRIL MALEATE [Concomitant]
     Indication: HYPERTENSION
  7. METHOTREXATE SODIUM [Suspect]
     Indication: PSORIATIC ARTHROPATHY
     Route: 058
     Dates: start: 19940921, end: 20111203

REACTIONS (23)
  - PYREXIA [None]
  - BIOPSY LUNG ABNORMAL [None]
  - DUODENITIS [None]
  - RESPIRATORY FAILURE [None]
  - RESPIRATORY MONILIASIS [None]
  - RENAL FAILURE [None]
  - SEPTIC SHOCK [None]
  - ASTHENIA [None]
  - DIFFUSE ALVEOLAR DAMAGE [None]
  - COUGH [None]
  - COAGULOPATHY [None]
  - MULTI-ORGAN FAILURE [None]
  - BIOPSY LIVER ABNORMAL [None]
  - FEBRILE NEUTROPENIA [None]
  - LEUKOPLAKIA ORAL [None]
  - HYPOXIA [None]
  - HEPATIC FAILURE [None]
  - LUNG INFECTION [None]
  - PANCYTOPENIA [None]
  - CANDIDIASIS [None]
  - ASPERGILLOSIS [None]
  - HYPOTENSION [None]
  - OLIGURIA [None]
